FAERS Safety Report 6672456-5 (Version None)
Quarter: 2010Q2

REPORT INFORMATION
  Report Type: 
  Country: None (occurrence: None)
  Receive Date: 20100408
  Receipt Date: 20100308
  Transmission Date: 20101027
  Serious: No
  Sender: FDA-Public Use
  Company Number: US-BAYER-201012957BCC

PATIENT
  Age: 77 Year
  Sex: Female
  Weight: 107 kg

DRUGS (2)
  1. ALEVE [Suspect]
     Indication: ARTHRALGIA
     Dosage: TOTAL DAILY DOSE: 220 MG  UNIT DOSE: 220 MG
     Route: 048
     Dates: start: 20060101, end: 20100305
  2. UNKNOWN KOSHER MULTIVITAMINS [Concomitant]

REACTIONS (1)
  - ASTHMA [None]
